FAERS Safety Report 10957720 (Version 12)
Quarter: 2021Q3

REPORT INFORMATION
  Report Type: Spontaneous
  Country: US (occurrence: US)
  Receive Date: 20150326
  Receipt Date: 20210730
  Transmission Date: 20211014
  Serious: Yes (Other)
  Sender: FDA-Public Use
  Company Number: US-PFIZER INC-2015103311

PATIENT
  Age: 69 Year
  Sex: Male

DRUGS (4)
  1. XALATAN [Suspect]
     Active Substance: LATANOPROST
     Indication: INTRAOCULAR PRESSURE INCREASED
     Dosage: UNK
     Route: 047
  2. XALATAN [Suspect]
     Active Substance: LATANOPROST
     Indication: OCULAR VASCULAR DISORDER
     Dosage: 2 GTT, 1X/DAY (STRENGTH: 0.005 %/125 MCG, 1 DROP BOTH EYES AT BEDTIME ONCE A DAY)
     Route: 047
  3. XALATAN [Suspect]
     Active Substance: LATANOPROST
     Indication: OCULAR HYPERTENSION
  4. XALATAN [Suspect]
     Active Substance: LATANOPROST
     Indication: OPEN ANGLE GLAUCOMA
     Dosage: 2 GTT, 1X/DAY (1 DROP BOTH EYES AT BEDTIME ONCE A DAY)
     Route: 047
     Dates: start: 19920510

REACTIONS (3)
  - Type 2 diabetes mellitus [Unknown]
  - Transient ischaemic attack [Unknown]
  - Depressed mood [Unknown]
